FAERS Safety Report 8862887 (Version 1)
Quarter: 2012Q4

REPORT INFORMATION
  Report Type: Report from Study
  Country: AR (occurrence: AR)
  Receive Date: 20121026
  Receipt Date: 20121026
  Transmission Date: 20130627
  Serious: Yes (Hospitalization)
  Sender: FDA-Public Use
  Company Number: AR-ABBOTT-12P-007-0999300-00

PATIENT
  Sex: Female

DRUGS (2)
  1. HUMIRA [Suspect]
     Indication: CROHN^S DISEASE
     Route: 058
     Dates: start: 201111, end: 201209
  2. HUMIRA [Suspect]
     Route: 058
     Dates: start: 201209

REACTIONS (4)
  - Female genital tract fistula [Recovering/Resolving]
  - Haemorrhage [Recovering/Resolving]
  - Crohn^s disease [Recovering/Resolving]
  - Diarrhoea [Recovering/Resolving]
